FAERS Safety Report 5998019-2 (Version None)
Quarter: 2008Q4

REPORT INFORMATION
  Report Type: 
  Country: None (occurrence: None)
  Receive Date: 20081211
  Receipt Date: 20081125
  Transmission Date: 20090506
  Serious: Yes (Death, Hospitalization)
  Sender: FDA-Public Use
  Company Number: KV200800549

PATIENT
  Age: 32 Year
  Sex: Male
  Weight: 68 kg

DRUGS (1)
  1. MORPHINE SULFATE [Suspect]
     Indication: ABDOMINAL PAIN
     Dosage: ORAL
     Route: 048
     Dates: end: 20080701

REACTIONS (3)
  - CARDIAC DISORDER [None]
  - PRODUCT QUALITY ISSUE [None]
  - RESPIRATORY FAILURE [None]
